FAERS Safety Report 10169096 (Version 2)
Quarter: 2014Q2

REPORT INFORMATION
  Report Type: Spontaneous
  Country: US (occurrence: US)
  Receive Date: 20140513
  Receipt Date: 20140529
  Transmission Date: 20141212
  Serious: Yes (Other)
  Sender: FDA-Public Use
  Company Number: US-ASTRAZENECA-2014SE30451

PATIENT
  Age: 57 Year
  Sex: Male
  Weight: 81.6 kg

DRUGS (8)
  1. SEROQUEL [Suspect]
     Indication: DEPRESSION
     Route: 048
  2. CRESTOR [Suspect]
     Indication: BLOOD CHOLESTEROL ABNORMAL
     Route: 048
     Dates: start: 2012, end: 20120613
  3. CRESTOR [Suspect]
     Indication: BLOOD CHOLESTEROL ABNORMAL
     Route: 048
  4. LOVAZA [Concomitant]
     Indication: BLOOD CHOLESTEROL ABNORMAL
  5. ASPIRIN [Concomitant]
     Indication: CARDIAC DISORDER
  6. CYMBALTA [Concomitant]
     Indication: DEPRESSION
  7. STRATTERA [Concomitant]
     Indication: DEPRESSION
  8. PENICILLIN [Concomitant]

REACTIONS (2)
  - Myocardial infarction [Recovered/Resolved]
  - Intentional product misuse [Recovered/Resolved]
